FAERS Safety Report 12234165 (Version 1)
Quarter: 2016Q2

REPORT INFORMATION
  Report Type: Spontaneous
  Country: US (occurrence: None)
  Receive Date: 20160401
  Receipt Date: 20160401
  Transmission Date: 20160815
  Serious: Yes (Other)
  Sender: FDA-Public Use
  Company Number: None

PATIENT
  Age: 54 Year
  Sex: Female
  Weight: 64.41 kg

DRUGS (2)
  1. CYTOXAN [Suspect]
     Active Substance: CYCLOPHOSPHAMIDE
  2. TAXOTERE [Suspect]
     Active Substance: DOCETAXEL
     Indication: BREAST CANCER
     Dosage: 4 TIMES EVERY 3RD, INJECTION
     Dates: start: 20090205, end: 20090531

REACTIONS (3)
  - Anhedonia [None]
  - Depression [None]
  - Androgenetic alopecia [None]

NARRATIVE: CASE EVENT DATE: 20090213
